FAERS Safety Report 5100039-7 (Version None)
Quarter: 2006Q3

REPORT INFORMATION
  Report Type: 
  Country: None (occurrence: None)
  Receive Date: 20060908
  Receipt Date: 20060828
  Transmission Date: 20061208
  Serious: Yes (Other)
  Sender: FDA-Public Use
  Company Number: PHBS2006IE13209

PATIENT
  Age: 37 Year
  Sex: Male

DRUGS (1)
  1. IMATINIB [Suspect]
     Indication: CHRONIC MYELOID LEUKAEMIA
     Dosage: 400 MG/DAY
     Dates: start: 20010601

REACTIONS (5)
  - BONE PAIN [None]
  - FATIGUE [None]
  - PERIORBITAL OEDEMA [None]
  - SCROTAL MASS [None]
  - TESTIS CANCER [None]
